FAERS Safety Report 6204185-6 (Version None)
Quarter: 2009Q2

REPORT INFORMATION
  Report Type: 
  Country: None (occurrence: None)
  Receive Date: 20090518
  Receipt Date: 20090204
  Transmission Date: 20091009
  Serious: No
  Sender: FDA-Public Use
  Company Number: WAES 0902USA00590

PATIENT
  Age: 69 Year
  Sex: Male

DRUGS (15)
  1. JANUVIA [Suspect]
     Indication: DIABETES MELLITUS
     Dosage: 100 MG/DAILY/PO
     Route: 048
     Dates: start: 20081104
  2. AMITRIPTYLINE HCL [Concomitant]
  3. AVODART [Concomitant]
  4. COREG [Concomitant]
  5. DARVOCET-N 100 [Concomitant]
  6. GLUCOPHAGE [Concomitant]
  7. LASIX [Concomitant]
  8. LIPITOR [Concomitant]
  9. LUNESTA [Concomitant]
  10. NEXIUM [Concomitant]
  11. PLAVIX [Concomitant]
  12. CAPTOPRIL [Concomitant]
  13. GEMFIBROZIL [Concomitant]
  14. METFORMIN [Concomitant]
  15. ZOLPIDEM TARTRATE [Concomitant]

REACTIONS (3)
  - ABNORMAL DREAMS [None]
  - GASTROINTESTINAL HAEMORRHAGE [None]
  - RASH GENERALISED [None]
